FAERS Safety Report 8315262-8 (Version None)
Quarter: 2012Q2

REPORT INFORMATION
  Report Type: 
  Country: None (occurrence: None)
  Receive Date: 20120426
  Receipt Date: 20120416
  Transmission Date: 20120825
  Serious: Yes (Life-Threatening, Hospitalization)
  Sender: FDA-Public Use
  Company Number: CA-CELGENEUS-028-21880-11121533

PATIENT
  Sex: Male

DRUGS (11)
  1. ATENOLOL [Concomitant]
     Route: 065
  2. REVLIMID [Suspect]
     Dosage: 15 MILLIGRAM
     Route: 048
     Dates: start: 20111115, end: 20120107
  3. MICARDIS [Concomitant]
     Route: 065
  4. VELCADE [Concomitant]
  5. HYDROMORPHONE HCL [Concomitant]
     Route: 065
  6. GABAPENTIN [Concomitant]
     Route: 065
  7. CRESTOR [Concomitant]
     Route: 065
  8. AREDIA [Concomitant]
     Route: 065
  9. FENTANYL [Concomitant]
     Route: 065
  10. PLAVIX [Concomitant]
     Route: 065
  11. HYDROCHLOROTHIAZIDE [Concomitant]
     Route: 065

REACTIONS (2)
  - PNEUMONIA [None]
  - SEPSIS [None]
